FAERS Safety Report 12724526 (Version 1)
Quarter: 2016Q3

REPORT INFORMATION
  Report Type: Spontaneous
  Country: JP (occurrence: JP)
  Receive Date: 20160908
  Receipt Date: 20160908
  Transmission Date: 20161109
  Serious: Yes (Other)
  Sender: FDA-Public Use
  Company Number: JP-ABBVIE-16P-087-1589237-00

PATIENT

DRUGS (1)
  1. CLARITH [Suspect]
     Active Substance: CLARITHROMYCIN
     Indication: PRODUCT USED FOR UNKNOWN INDICATION
     Route: 065
     Dates: start: 20160201, end: 201602

REACTIONS (1)
  - Lip oedema [Not Recovered/Not Resolved]

NARRATIVE: CASE EVENT DATE: 20160205
